FAERS Safety Report 7919135-1 (Version None)
Quarter: 2011Q4

REPORT INFORMATION
  Report Type: 
  Country: None (occurrence: None)
  Receive Date: 20111117
  Receipt Date: 20111107
  Transmission Date: 20120403
  Serious: Yes (Hospitalization)
  Sender: FDA-Public Use
  Company Number: US-ROCHE-1011688

PATIENT
  Sex: Female

DRUGS (5)
  1. HERCEPTIN [Suspect]
  2. IXABEPILONE [Suspect]
     Indication: BREAST CANCER
     Route: 042
  3. CARBOPLATIN [Suspect]
     Indication: BREAST CANCER
     Dosage: AUC 2
     Route: 042
  4. HERCEPTIN [Suspect]
  5. HERCEPTIN [Suspect]
     Indication: BREAST CANCER
     Route: 042

REACTIONS (11)
  - DEHYDRATION [None]
  - MUSCULAR WEAKNESS [None]
  - ASTHENIA [None]
  - NAUSEA [None]
  - MENTAL STATUS CHANGES [None]
  - HYPONATRAEMIA [None]
  - ENCEPHALOPATHY [None]
  - CEREBRAL VENTRICLE DILATATION [None]
  - URINARY INCONTINENCE [None]
  - DIARRHOEA [None]
  - VOMITING [None]
